FAERS Safety Report 17159434 (Version 1)
Quarter: 2019Q4

REPORT INFORMATION
  Report Type: Spontaneous
  Country: AT (occurrence: AT)
  Receive Date: 20191216
  Receipt Date: 20191216
  Transmission Date: 20200122
  Serious: Yes (Hospitalization)
  Sender: FDA-Public Use
  Company Number: AT-EUSA PHARMA (UK) LTD.-EUSA2594

PATIENT

DRUGS (3)
  1. LISINOPRIL. [Concomitant]
     Active Substance: LISINOPRIL
     Route: 065
  2. SYLVANT [Suspect]
     Active Substance: SILTUXIMAB
     Indication: CASTLEMAN^S DISEASE
     Dosage: 11 MG/KG, 1 IN 1 WEEK
     Route: 065
     Dates: start: 201503
  3. INH [Suspect]
     Active Substance: ISONIAZID
     Indication: LATENT TUBERCULOSIS
     Dosage: 100 MG
     Route: 048

REACTIONS (15)
  - Pleurisy [Unknown]
  - Retinopathy hypertensive [Unknown]
  - Night sweats [Recovered/Resolved]
  - Dyspnoea exertional [Unknown]
  - Retinal anomaly congenital [Unknown]
  - Carotid arteriosclerosis [Unknown]
  - Hypermetropia [Unknown]
  - Cataract [Unknown]
  - Sjogren^s syndrome [Unknown]
  - Spinal cord operation [Unknown]
  - Astigmatism [Unknown]
  - Optic ischaemic neuropathy [Unknown]
  - Renal cyst [Unknown]
  - Hypercholesterolaemia [Unknown]
  - Pruritus [Recovering/Resolving]

NARRATIVE: CASE EVENT DATE: 201504
